FAERS Safety Report 23213960 (Version 2)
Quarter: 2024Q1

REPORT INFORMATION
  Report Type: Spontaneous
  Country: US (occurrence: US)
  Receive Date: 20231121
  Receipt Date: 20240106
  Transmission Date: 20240410
  Serious: Yes (Other)
  Sender: FDA-Public Use
  Company Number: US-ABBVIE-5499978

PATIENT
  Age: 81 Year
  Sex: Male

DRUGS (2)
  1. OZURDEX [Suspect]
     Active Substance: DEXAMETHASONE
     Indication: Chorioretinitis
     Dosage: TIME INTERVAL: AS NECESSARY: FORM STRENGTH: 0.7 MILLIGRAM EVERY ONE DAYS
     Route: 031
     Dates: start: 20230905
  2. COSOPT [Concomitant]
     Active Substance: DORZOLAMIDE HYDROCHLORIDE\TIMOLOL MALEATE
     Indication: Glaucoma
     Dosage: ONLY EYE USED

REACTIONS (3)
  - Vitrectomy [Unknown]
  - Endophthalmitis [Recovering/Resolving]
  - Retinal detachment [Recovering/Resolving]

NARRATIVE: CASE EVENT DATE: 20230914
